FAERS Safety Report 7545865-X (Version None)
Quarter: 2011Q2

REPORT INFORMATION
  Report Type: 
  Country: None (occurrence: None)
  Receive Date: 20110614
  Receipt Date: 20110510
  Transmission Date: 20111010
  Serious: Yes (Other)
  Sender: FDA-Public Use
  Company Number: GB-VALEANT-2011VX001339

PATIENT
  Age: 65 Year
  Sex: Female

DRUGS (1)
  1. FLUOROURACIL [Suspect]
     Indication: HYPERKERATOSIS
     Route: 061
     Dates: start: 20110307, end: 20110301

REACTIONS (3)
  - TOXICITY TO VARIOUS AGENTS [None]
  - BLADDER DISORDER [None]
  - HAEMATURIA [None]
